FAERS Safety Report 24140018 (Version 1)
Quarter: 2024Q3

REPORT INFORMATION
  Report Type: Spontaneous
  Country: FR (occurrence: FR)
  Receive Date: 20240726
  Receipt Date: 20240726
  Transmission Date: 20241016
  Serious: Yes (Other)
  Sender: AUROBINDO
  Company Number: FR-AFSSAPS-MP2024001069

PATIENT
  Age: 71 Year
  Sex: Female

DRUGS (5)
  1. CARBOPLATIN [Suspect]
     Active Substance: CARBOPLATIN
     Indication: Ovarian cancer
     Dosage: UNK UNK, CYCLICAL (1 CYCLE OF CHEMOTHERAPY EVERY 2 WEEKS)
     Route: 042
     Dates: start: 20240319, end: 20240319
  2. SOLU-MEDROL [Concomitant]
     Active Substance: METHYLPREDNISOLONE SODIUM SUCCINATE
     Indication: Ovarian cancer
     Dosage: UNK UNK, CYCLICAL (1 CYCLE OF CHEMOTHERAPY EVERY 2 WEEKS)
     Route: 065
     Dates: start: 20240319, end: 20240319
  3. GEMZAR [Concomitant]
     Active Substance: GEMCITABINE HYDROCHLORIDE
     Indication: Ovarian cancer
     Dosage: UNK UNK, CYCLICAL (1 CYCLE OF CHEMOTHERAPY EVERY 2 WEEKS)
     Route: 065
     Dates: start: 20240319, end: 20240319
  4. ONDANSETRON HYDROCHLORIDE [Concomitant]
     Active Substance: ONDANSETRON HYDROCHLORIDE
     Indication: Ovarian cancer
     Dosage: UNK UNK, CYCLICAL (1 CYCLE OF CHEMOTHERAPY EVERY 2 WEEKS)
     Route: 065
     Dates: start: 20240319, end: 20240319
  5. POLARAMINE [Concomitant]
     Active Substance: DEXCHLORPHENIRAMINE MALEATE
     Indication: Ovarian cancer
     Dosage: UNK UNK, CYCLICAL (1 CYCLE OF CHEMOTHERAPY EVERY 2 WEEKS)
     Route: 065
     Dates: start: 20240319, end: 20240319

REACTIONS (1)
  - Anaphylactic reaction [Recovered/Resolved]

NARRATIVE: CASE EVENT DATE: 20240319
